FAERS Safety Report 8830098 (Version 1)
Quarter: 2012Q4

REPORT INFORMATION
  Report Type: 
  Country: US (occurrence: US)
  Receive Date: 20121008
  Receipt Date: 20121008
  Transmission Date: 20130627
  Serious: Yes (Hospitalization)
  Sender: FDA-Public Use
  Company Number: US-B.I. PHARMACEUTICALS,INC./RIDGEFIELD-2012-BP-24361BP

PATIENT
  Age: 86 None
  Sex: Female
  Weight: 59 kg

DRUGS (4)
  1. SPIRIVA [Suspect]
     Indication: CHRONIC OBSTRUCTIVE PULMONARY DISEASE
     Dosage: 18 mcg
     Route: 055
     Dates: start: 2002
  2. SPIRIVA [Suspect]
     Route: 048
     Dates: start: 20121003, end: 20121003
  3. TRIAMTERENE/HCTZ [Concomitant]
     Indication: HYPERTENSION
     Route: 048
     Dates: start: 2002
  4. PREMARIN [Concomitant]
     Indication: HORMONE REPLACEMENT THERAPY
     Dosage: 0.03 mg
     Route: 048
     Dates: start: 1992

REACTIONS (2)
  - Cholelithiasis [Recovered/Resolved]
  - Incorrect route of drug administration [Recovered/Resolved]
